FAERS Safety Report 10523582 (Version 1)
Quarter: 2014Q4

REPORT INFORMATION
  Report Type: Spontaneous
  Country: US (occurrence: US)
  Receive Date: 20141017
  Receipt Date: 20141017
  Transmission Date: 20150528
  Serious: Yes (Hospitalization)
  Sender: FDA-Public Use
  Company Number: US-JNJCP-30000243817

PATIENT
  Sex: Female
  Weight: 51 kg

DRUGS (3)
  1. CALCIUM + D [Concomitant]
     Active Substance: CALCIUM\VITAMIN D
     Indication: ROUTINE HEALTH MAINTENANCE
     Dosage: TWICE A DAY
  2. VITAMIN D [Concomitant]
     Active Substance: CHOLECALCIFEROL
     Indication: ROUTINE HEALTH MAINTENANCE
     Dosage: TWICE A DAY
  3. AVEENO DAILY MOISTURIZING [Suspect]
     Active Substance: DIMETHICONE
     Indication: DRY SKIN PROPHYLAXIS
     Dosage: LITTLE BIT ON SKIN, ONE TIME
     Route: 061

REACTIONS (2)
  - Application site reaction [Recovered/Resolved]
  - Application site swelling [Recovered/Resolved]
